FAERS Safety Report 5896353-8 (Version None)
Quarter: 2008Q3

REPORT INFORMATION
  Report Type: 
  Country: None (occurrence: None)
  Receive Date: 20080923
  Receipt Date: 20080908
  Transmission Date: 20090109
  Serious: Yes (Death)
  Sender: FDA-Public Use
  Company Number: KADN20080343

PATIENT
  Age: 24 Year
  Sex: Female

DRUGS (1)
  1. MORPHINE [Suspect]
     Dosage: UNKNOWN, UNKNOWN, ORAL
     Route: 048
     Dates: end: 20050101

REACTIONS (1)
  - OVERDOSE [None]
